FAERS Safety Report 15950582 (Version 3)
Quarter: 2019Q1

REPORT INFORMATION
  Report Type: Spontaneous
  Country: IT (occurrence: IT)
  Receive Date: 20190212
  Receipt Date: 20190222
  Transmission Date: 20190417
  Serious: Yes (Death)
  Sender: FDA-Public Use
  Company Number: IT-DSJP-DSE-2019-104728

PATIENT

DRUGS (1)
  1. LIXIANA [Suspect]
     Active Substance: EDOXABAN TOSYLATE
     Indication: ATRIAL FIBRILLATION
     Dosage: 30 MG, QD
     Route: 048
     Dates: start: 20160101

REACTIONS (5)
  - Ischaemic stroke [Fatal]
  - Hemiparesis [Fatal]
  - Aphasia [Fatal]
  - Underdose [Fatal]
  - Medication error [Fatal]

NARRATIVE: CASE EVENT DATE: 20181119
